FAERS Safety Report 5916282-0 (Version None)
Quarter: 2008Q4

REPORT INFORMATION
  Report Type: 
  Country: None (occurrence: None)
  Receive Date: 20081013
  Receipt Date: 20081003
  Transmission Date: 20090506
  Serious: Yes (Other)
  Sender: FDA-Public Use
  Company Number: PHHY2008CA23528

PATIENT
  Sex: Female

DRUGS (2)
  1. ESTRADERM [Suspect]
     Dosage: UNK
  2. PROVERA [Concomitant]
     Dosage: 10 MG

REACTIONS (3)
  - ARTHROPATHY [None]
  - KNEE OPERATION [None]
  - URINARY TRACT INFECTION [None]
